FAERS Safety Report 20183253 (Version 1)
Quarter: 2021Q4

REPORT INFORMATION
  Report Type: Spontaneous
  Country: US (occurrence: US)
  Receive Date: 20211214
  Receipt Date: 20211214
  Transmission Date: 20220303
  Serious: No
  Sender: FDA-Public Use
  Company Number: US-ABBVIE-21K-163-3719010-00

PATIENT
  Age: 71 Year
  Sex: Female

DRUGS (2)
  1. IMBRUVICA [Suspect]
     Active Substance: IBRUTINIB
     Indication: Chronic lymphocytic leukaemia
     Route: 048
     Dates: start: 20201008, end: 20210127
  2. IMBRUVICA [Suspect]
     Active Substance: IBRUTINIB
     Indication: B-cell small lymphocytic lymphoma

REACTIONS (24)
  - Dysgeusia [Unknown]
  - Urine odour abnormal [Unknown]
  - Parosmia [Unknown]
  - Dry skin [Unknown]
  - Skin fissures [Unknown]
  - Gait disturbance [Unknown]
  - Skin exfoliation [Unknown]
  - Joint swelling [Not Recovered/Not Resolved]
  - Hypoaesthesia [Unknown]
  - Limb mass [Unknown]
  - Skin mass [Unknown]
  - Nodule [Unknown]
  - Musculoskeletal stiffness [Not Recovered/Not Resolved]
  - Immunoglobulins abnormal [Unknown]
  - Ligamentitis [Not Recovered/Not Resolved]
  - White blood cell count abnormal [Unknown]
  - Cerebral calcification [Unknown]
  - Arthralgia [Not Recovered/Not Resolved]
  - Dizziness [Unknown]
  - Arthralgia [Recovering/Resolving]
  - Pain [Recovering/Resolving]
  - Haemorrhage [Not Recovered/Not Resolved]
  - Contusion [Not Recovered/Not Resolved]
  - Cough [Not Recovered/Not Resolved]

NARRATIVE: CASE EVENT DATE: 20201201
